FAERS Safety Report 5416612-2 (Version None)
Quarter: 2007Q3

REPORT INFORMATION
  Report Type: 
  Country: None (occurrence: None)
  Receive Date: 20070816
  Receipt Date: 20070814
  Transmission Date: 20080115
  Serious: Yes (Hospitalization)
  Sender: FDA-Public Use
  Company Number: FR-AVENTIS-200712583FR

PATIENT
  Age: 45 Year
  Sex: Male

DRUGS (9)
  1. FLAGYL [Suspect]
     Route: 048
     Dates: start: 20070109, end: 20070411
  2. KALETRA [Concomitant]
  3. EPIVIR [Concomitant]
  4. PROTEASE INHIBITORS [Concomitant]
  5. LANTUS [Concomitant]
     Dates: start: 20060901
  6. HUMALOG [Concomitant]
     Dates: start: 20060901
  7. PROGRAF [Concomitant]
     Dates: start: 20060901
  8. GARDENALE                          /00023202/ [Concomitant]
     Indication: EPILEPSY
  9. DEPAKENE [Concomitant]
     Indication: EPILEPSY

REACTIONS (1)
  - RADICULOPATHY [None]
